FAERS Safety Report 18125584 (Version 2)
Quarter: 2020Q3

REPORT INFORMATION
  Report Type: Spontaneous
  Country: US (occurrence: US)
  Receive Date: 20200808
  Receipt Date: 20200904
  Transmission Date: 20201103
  Serious: No
  Sender: FDA-Public Use
  Company Number: US-ASTRAZENECA-2020SE95229

PATIENT
  Sex: Female
  Weight: 96.6 kg

DRUGS (3)
  1. BYDUREON BCISE [Suspect]
     Active Substance: EXENATIDE
     Indication: TYPE 2 DIABETES MELLITUS
     Route: 058
     Dates: start: 20200718
  2. AMITIZA [Concomitant]
     Active Substance: LUBIPROSTONE
     Indication: POLLAKIURIA
     Route: 048
     Dates: start: 202005
  3. BYDUREON [Suspect]
     Active Substance: EXENATIDE
     Indication: TYPE 2 DIABETES MELLITUS
     Route: 058
     Dates: start: 201909

REACTIONS (7)
  - Blood glucose abnormal [Unknown]
  - Device leakage [Unknown]
  - Injection site haemorrhage [Recovered/Resolved]
  - Injection site pain [Recovered/Resolved]
  - Inability to afford medication [Unknown]
  - Device use issue [Unknown]
  - Device issue [Unknown]
